FAERS Safety Report 9916307 (Version 1)
Quarter: 2014Q1

REPORT INFORMATION
  Report Type: Spontaneous
  Country: US (occurrence: US)
  Receive Date: 20140221
  Receipt Date: 20140221
  Transmission Date: 20141002
  Serious: No
  Sender: FDA-Public Use
  Company Number: US-BAYER-2014-027565

PATIENT
  Sex: Male

DRUGS (1)
  1. ALEVE GELCAPS [Suspect]
     Indication: PAIN
     Dosage: 3 DF, ONCE
     Route: 048
     Dates: start: 20140219, end: 20140219

REACTIONS (1)
  - Inappropriate schedule of drug administration [None]
